FAERS Safety Report 20338074 (Version 3)
Quarter: 2022Q2

REPORT INFORMATION
  Report Type: Spontaneous
  Country: BR (occurrence: None)
  Receive Date: 20220115
  Receipt Date: 20220408
  Transmission Date: 20220720
  Serious: Yes (Death, Other)
  Sender: FDA-Public Use
  Company Number: BR-ROCHE-2999383

PATIENT
  Age: 38 Year
  Sex: Female
  Weight: 64.8 kg

DRUGS (3)
  1. XELODA [Suspect]
     Active Substance: CAPECITABINE
     Indication: Breast cancer
     Dosage: 2500 MG A DAY FOR 14 DAY STRAIGHT AND 7 DAYS OF PAUSE. 3 TABLETS OF 500 MG 30 MINUTES AFTER BREAKFAS
     Route: 048
     Dates: start: 20210830
  2. TYKERB [Suspect]
     Active Substance: LAPATINIB DITOSYLATE
     Indication: Breast cancer
     Dosage: 5 TABLETS/DAY
     Route: 048
     Dates: start: 20210830
  3. LAPATINIB [Concomitant]
     Active Substance: LAPATINIB
     Dosage: PER DAY
     Route: 065

REACTIONS (4)
  - Gamma-glutamyltransferase increased [Not Recovered/Not Resolved]
  - Somnolence [Unknown]
  - Depressed level of consciousness [Unknown]
  - Metastatic neoplasm [Fatal]

NARRATIVE: CASE EVENT DATE: 20210923
